FAERS Safety Report 8329853-1 (Version None)
Quarter: 2012Q2

REPORT INFORMATION
  Report Type: 
  Country: None (occurrence: None)
  Receive Date: 20120502
  Receipt Date: 20120424
  Transmission Date: 20120825
  Serious: Yes (Hospitalization, Other)
  Sender: FDA-Public Use
  Company Number: RU-BAYER-2012-040655

PATIENT
  Age: 36 Year
  Sex: Female

DRUGS (8)
  1. PLAVIX [Suspect]
     Dosage: 75 MG, UNK
     Route: 048
     Dates: start: 20110920
  2. PLAQUENIL [Concomitant]
     Indication: SYSTEMIC LUPUS ERYTHEMATOSUS
     Dosage: UNK
  3. METHYLPREDNISOLONE [Concomitant]
     Indication: SYSTEMIC LUPUS ERYTHEMATOSUS
  4. EGILOK [Concomitant]
     Dosage: UNK
  5. ISOSORBIDE MONONITRATE [Concomitant]
     Dosage: UNK
  6. ASPIRIN [Suspect]
     Dosage: 100 MG, UNK
     Route: 048
     Dates: start: 20110920
  7. ENAP [Concomitant]
     Dosage: UNK
  8. OMEZ [Concomitant]
     Dosage: UNK

REACTIONS (6)
  - UTERINE HAEMORRHAGE [None]
  - GINGIVAL BLEEDING [None]
  - HAEMORRHAGIC ANAEMIA [None]
  - COAGULOPATHY [None]
  - CONTUSION [None]
  - ANGINA PECTORIS [None]
